FAERS Safety Report 15967359 (Version 1)
Quarter: 2019Q1

REPORT INFORMATION
  Report Type: Report from Study
  Country: DE (occurrence: DE)
  Receive Date: 20190215
  Receipt Date: 20190215
  Transmission Date: 20190418
  Serious: Yes (Hospitalization)
  Sender: FDA-Public Use
  Company Number: DE-JNJFOC-20190209208

PATIENT
  Age: 8 Decade
  Sex: Female

DRUGS (7)
  1. CIMZIA [Concomitant]
     Active Substance: CERTOLIZUMAB PEGOL
     Route: 065
     Dates: start: 201104, end: 201109
  2. MABTHERA [Concomitant]
     Active Substance: RITUXIMAB
     Route: 065
     Dates: start: 201212
  3. MABTHERA [Concomitant]
     Active Substance: RITUXIMAB
     Route: 065
     Dates: start: 201111
  4. SIMPONI [Suspect]
     Active Substance: GOLIMUMAB
     Indication: RHEUMATOID ARTHRITIS
     Route: 058
     Dates: start: 201011, end: 201104
  5. MABTHERA [Concomitant]
     Active Substance: RITUXIMAB
     Route: 065
     Dates: start: 201607
  6. METHOTREXATE. [Concomitant]
     Active Substance: METHOTREXATE
     Route: 065
  7. MABTHERA [Concomitant]
     Active Substance: RITUXIMAB
     Route: 065
     Dates: start: 201407

REACTIONS (1)
  - Bronchial carcinoma [Recovered/Resolved]

NARRATIVE: CASE EVENT DATE: 20170821
